FAERS Safety Report 5888781-1 (Version None)
Quarter: 2008Q3

REPORT INFORMATION
  Report Type: 
  Country: None (occurrence: None)
  Receive Date: 20080919
  Receipt Date: 20080912
  Transmission Date: 20090109
  Serious: Yes (Hospitalization)
  Sender: FDA-Public Use
  Company Number: IT-JNJFOC-20080901278

PATIENT
  Age: 47 Year
  Sex: Female

DRUGS (1)
  1. TAVANIC [Suspect]
     Indication: BRONCHOPNEUMONIA
     Route: 048

REACTIONS (2)
  - COUGH [None]
  - SENSATION OF FOREIGN BODY [None]
